FAERS Safety Report 6366969-3 (Version None)
Quarter: 2009Q3

REPORT INFORMATION
  Report Type: 
  Country: None (occurrence: None)
  Receive Date: 20090921
  Receipt Date: 20090909
  Transmission Date: 20100115
  Serious: Yes (Hospitalization)
  Sender: FDA-Public Use
  Company Number: JP-PFIZER INC-2009200416

PATIENT
  Age: 54 Year

DRUGS (6)
  1. BLINDED *ANASTROZOLE [Suspect]
     Indication: BREAST CANCER
     Dosage: STUDY DRUG
     Route: 048
     Dates: start: 20070928, end: 20090415
  2. BLINDED *NO SUBJECT DRUG [Suspect]
     Indication: BREAST CANCER
     Dosage: STUDY DRUG
     Route: 048
     Dates: start: 20070928, end: 20090415
  3. BLINDED EXEMESTANE [Suspect]
     Indication: BREAST CANCER
     Dosage: STUDY DRUG
     Route: 048
     Dates: start: 20070928, end: 20090415
  4. BLINDED *ANASTROZOLE [Suspect]
     Dosage: FOLLOW-UP DRUG
     Dates: start: 20090509, end: 20090806
  5. BLINDED *NO SUBJECT DRUG [Suspect]
     Dosage: FOLLOW-UP DRUG
     Dates: start: 20090509, end: 20090806
  6. BLINDED EXEMESTANE [Suspect]
     Dosage: FOLLOW-UP DRUG
     Dates: start: 20090509, end: 20090806

REACTIONS (2)
  - CONDITION AGGRAVATED [None]
  - HEPATIC FUNCTION ABNORMAL [None]
